FAERS Safety Report 7150396-5 (Version None)
Quarter: 2010Q4

REPORT INFORMATION
  Report Type: 
  Country: None (occurrence: None)
  Receive Date: 20101210
  Receipt Date: 20101126
  Transmission Date: 20110411
  Serious: Yes (Other)
  Sender: FDA-Public Use
  Company Number: PHHY2010JP80902

PATIENT
  Sex: Female
  Weight: 71 kg

DRUGS (12)
  1. ICL670A ICL+DISTAB [Suspect]
     Indication: IRON OVERLOAD
     Dosage: 125 MG DAILY
     Route: 048
     Dates: start: 20091009, end: 20100722
  2. ICL670A ICL+DISTAB [Suspect]
     Dosage: 250 MG DAILY
     Route: 048
     Dates: start: 20100723
  3. PROGRAF [Concomitant]
     Dosage: 1MG
     Route: 048
     Dates: start: 20050311
  4. GLYCYRON [Concomitant]
     Dosage: 6DF
     Route: 048
     Dates: start: 20090828
  5. GLYCYRON [Concomitant]
     Dosage: 3DF
     Route: 048
  6. GLYCYRON [Concomitant]
     Dosage: 2DF
     Route: 048
     Dates: end: 20100527
  7. MAGLAX [Concomitant]
     Dosage: 2DF
     Route: 048
     Dates: start: 20090911
  8. MAGLAX [Concomitant]
     Dosage: UNK
     Route: 048
     Dates: end: 20100422
  9. URSO 250 [Concomitant]
     Dosage: 600MG
     Route: 048
     Dates: start: 20090828
  10. URSO 250 [Concomitant]
     Dosage: 300MG
     Route: 048
  11. URSO 250 [Concomitant]
     Dosage: 200MG
     Route: 048
  12. URSO 250 [Concomitant]
     Dosage: 300MG
     Route: 048

REACTIONS (5)
  - ALANINE AMINOTRANSFERASE INCREASED [None]
  - ASPARTATE AMINOTRANSFERASE INCREASED [None]
  - CONCOMITANT DISEASE AGGRAVATED [None]
  - LIVER DISORDER [None]
  - SERUM FERRITIN INCREASED [None]
